FAERS Safety Report 8402145-8 (Version None)
Quarter: 2012Q2

REPORT INFORMATION
  Report Type: 
  Country: None (occurrence: None)
  Receive Date: 20120601
  Receipt Date: 20120529
  Transmission Date: 20120825
  Serious: Yes (Death, Hospitalization)
  Sender: FDA-Public Use
  Company Number: US-B.I. PHARMACEUTICALS,INC./RIDGEFIELD-2012-BP-11528BP

PATIENT
  Age: 85 Year
  Sex: Male

DRUGS (10)
  1. LANTUS [Concomitant]
  2. SIMVASTATIN [Concomitant]
  3. SPIRONOLACTONE [Concomitant]
  4. METOPROLOL TARTRATE [Concomitant]
  5. PRADAXA [Suspect]
     Dates: end: 20120101
  6. DIGOXIN [Concomitant]
  7. HUMALOG [Concomitant]
  8. FUROSEMIDE [Concomitant]
  9. NITROGLYCERIN [Concomitant]
  10. PLAVIX [Concomitant]

REACTIONS (2)
  - CARDIAC DISORDER [None]
  - RECTAL HAEMORRHAGE [None]
